FAERS Safety Report 8487691-3 (Version None)
Quarter: 2012Q2

REPORT INFORMATION
  Report Type: 
  Country: None (occurrence: None)
  Receive Date: 20120402
  Receipt Date: 20090617
  Transmission Date: 20120825
  Serious: Yes (Other)
  Sender: FDA-Public Use
  Company Number: PHEH2009US06384

PATIENT
  Sex: Male
  Weight: 112 kg

DRUGS (2)
  1. METOPROLOL TARTRATE [Suspect]
     Dosage: 25, BID
  2. EXFORGE [Suspect]
     Dosage: AMLO5/VAL160,ONCE A DAY

REACTIONS (3)
  - SWELLING FACE [None]
  - TESTICULAR SWELLING [None]
  - OEDEMA PERIPHERAL [None]
